FAERS Safety Report 10412833 (Version 1)
Quarter: 2014Q3

REPORT INFORMATION
  Report Type: Spontaneous
  Country: US (occurrence: None)
  Receive Date: 20140825
  Receipt Date: 20140825
  Transmission Date: 20150326
  Serious: Yes (Other)
  Sender: FDA-Public Use
  Company Number: AUR-APL-2014-08835

PATIENT
  Age: 81 Year
  Sex: Female

DRUGS (7)
  1. FISH OIL [Concomitant]
     Active Substance: FISH OIL
  2. GABAPENTIN. [Concomitant]
     Active Substance: GABAPENTIN
  3. VITAMIN B12 /00056201/ (CYANOCOBALAMIN) [Concomitant]
  4. ACETAMINOPHEN (PARACETAMOL) [Concomitant]
     Active Substance: ACETAMINOPHEN
  5. DULOXETINE [Suspect]
     Active Substance: DULOXETINE
     Indication: BACK PAIN
     Route: 048
  6. DULOXETINE [Suspect]
     Active Substance: DULOXETINE
     Indication: POLYNEUROPATHY
     Route: 048
  7. MAGNESIUM [Concomitant]
     Active Substance: MAGNESIUM

REACTIONS (4)
  - Cataract [None]
  - Angle closure glaucoma [None]
  - Hypermetropia [None]
  - Mydriasis [None]
